FAERS Safety Report 15907298 (Version 2)
Quarter: 2019Q1

REPORT INFORMATION
  Report Type: Spontaneous
  Country: US (occurrence: US)
  Receive Date: 20190204
  Receipt Date: 20190208
  Transmission Date: 20190417
  Serious: No
  Sender: FDA-Public Use
  Company Number: US-PFIZER INC-2019041373

PATIENT
  Age: 66 Year
  Sex: Male
  Weight: 62.13 kg

DRUGS (12)
  1. HYDROCODONE [Interacting]
     Active Substance: HYDROCODONE
     Indication: BACK PAIN
  2. ACETAMINOPHEN. [Concomitant]
     Active Substance: ACETAMINOPHEN
     Indication: MUSCULOSKELETAL DISCOMFORT
  3. HYDROCODONE [Interacting]
     Active Substance: HYDROCODONE
     Indication: MUSCULOSKELETAL DISCOMFORT
  4. HYDROCODONE [Interacting]
     Active Substance: HYDROCODONE
     Indication: SCIATICA
     Dosage: 5 MG, 2X/DAY
     Route: 048
  5. ACETAMINOPHEN. [Concomitant]
     Active Substance: ACETAMINOPHEN
     Indication: BACK PAIN
  6. AMLODIPINE [Concomitant]
     Active Substance: AMLODIPINE BESYLATE
     Indication: BLOOD PRESSURE ABNORMAL
     Dosage: 2.5 MG, DAILY
     Route: 048
  7. HYDROCODONE [Interacting]
     Active Substance: HYDROCODONE
     Indication: MUSCULOSKELETAL DISCOMFORT
  8. CLONIDINE HCL [Concomitant]
     Active Substance: CLONIDINE HYDROCHLORIDE
     Indication: BLOOD PRESSURE ABNORMAL
     Dosage: 1 MG, 2X/DAY
     Route: 048
     Dates: start: 2006
  9. CHANTIX [Suspect]
     Active Substance: VARENICLINE TARTRATE
     Indication: SMOKING CESSATION THERAPY
     Dosage: 2 MG, 2X/DAY (ONE TABLET BY MOUTH AT NIGHT AND ONE IN THE MORNING)
     Route: 048
     Dates: start: 201810, end: 20190123
  10. ESCITALOPRAM OXALATE. [Concomitant]
     Active Substance: ESCITALOPRAM OXALATE
     Indication: DEPRESSION
     Dosage: 5 MG, DAILY
  11. ACETAMINOPHEN. [Concomitant]
     Active Substance: ACETAMINOPHEN
     Indication: SCIATICA
     Dosage: 375 MG, 2X/DAY
     Route: 048
  12. ACETAMINOPHEN. [Concomitant]
     Active Substance: ACETAMINOPHEN
     Indication: MUSCULOSKELETAL DISCOMFORT

REACTIONS (7)
  - Dizziness [Unknown]
  - False negative investigation result [Unknown]
  - Restlessness [Unknown]
  - Irritability [Unknown]
  - Disturbance in attention [Unknown]
  - Drug interaction [Unknown]
  - Anxiety [Unknown]

NARRATIVE: CASE EVENT DATE: 20190111
